FAERS Safety Report 21276242 (Version 2)
Quarter: 2022Q3

REPORT INFORMATION
  Report Type: Spontaneous
  Country: US (occurrence: US)
  Receive Date: 20220831
  Receipt Date: 20220901
  Transmission Date: 20221026
  Serious: Yes (Hospitalization, Other)
  Sender: FDA-Public Use
  Company Number: US-ABBVIE-22K-163-4430081-00

PATIENT
  Sex: Female

DRUGS (1)
  1. HUMIRA [Suspect]
     Active Substance: ADALIMUMAB
     Indication: Product used for unknown indication
     Route: 058
     Dates: start: 2021, end: 20220806

REACTIONS (10)
  - Loss of consciousness [Recovered/Resolved]
  - Inflammatory marker increased [Not Recovered/Not Resolved]
  - Wound [Unknown]
  - Fall [Recovered/Resolved]
  - Feeling abnormal [Unknown]
  - Dizziness [Unknown]
  - Illness [Not Recovered/Not Resolved]
  - Blood iron decreased [Unknown]
  - Crohn^s disease [Not Recovered/Not Resolved]
  - Therapeutic product effect incomplete [Not Recovered/Not Resolved]

NARRATIVE: CASE EVENT DATE: 20210101
